FAERS Safety Report 4651670-4 (Version None)
Quarter: 2005Q2

REPORT INFORMATION
  Report Type: 
  Country: None (occurrence: None)
  Receive Date: 20050404
  Receipt Date: 20041102
  Transmission Date: 20051028
  Serious: No
  Sender: FDA-Public Use
  Company Number: USA041183020

PATIENT
  Age: 53 Year
  Sex: Female
  Weight: 106 kg

DRUGS (7)
  1. CYMBALTA [Suspect]
     Indication: NEUROPATHY
     Dosage: 60 MG DAY
     Dates: start: 20041020
  2. COREG [Concomitant]
  3. LANOXIN (DIGOXIN STREULI) [Concomitant]
  4. COUMADIN [Concomitant]
  5. TRENTAL [Concomitant]
  6. LASIX [Concomitant]
  7. XANAX (ALPRAZOLAM DUM) [Concomitant]

REACTIONS (3)
  - PARAESTHESIA [None]
  - PRURITUS [None]
  - URTICARIA [None]
